FAERS Safety Report 4425595-3 (Version None)
Quarter: 2004Q3

REPORT INFORMATION
  Report Type: 
  Country: None (occurrence: None)
  Receive Date: 20040810
  Receipt Date: 20040730
  Transmission Date: 20050211
  Serious: Yes (Death, Life-Threatening, Hospitalization)
  Sender: FDA-Public Use
  Company Number: S04-USA-03009-01

PATIENT
  Age: 47 Year
  Sex: Male

DRUGS (1)
  1. CELEXA [Suspect]
     Indication: DEPRESSION
     Dosage: 60 MG QD PO
     Route: 048
     Dates: end: 20040522

REACTIONS (12)
  - APALLIC SYNDROME [None]
  - BRAIN OEDEMA [None]
  - COMA [None]
  - ELECTROLYTE IMBALANCE [None]
  - HYPERHIDROSIS [None]
  - HYPERTONIA [None]
  - LIVER DISORDER [None]
  - MENTAL STATUS CHANGES [None]
  - PYREXIA [None]
  - RESPIRATORY ARREST [None]
  - SEROTONIN SYNDROME [None]
  - TREMOR [None]
